FAERS Safety Report 9782312 (Version 2)
Quarter: 2014Q1

REPORT INFORMATION
  Report Type: Spontaneous
  Country: IT (occurrence: IT)
  Receive Date: 20131226
  Receipt Date: 20140114
  Transmission Date: 20141002
  Serious: Yes (Hospitalization, Other)
  Sender: FDA-Public Use
  Company Number: IT-TEVA-450920ISR

PATIENT
  Age: 57 Year
  Sex: Female

DRUGS (1)
  1. METFORMIN HYDROCHLORIDE [Suspect]
     Indication: DIABETES MELLITUS
     Dosage: 450 MILLIGRAM DAILY;
     Route: 048
     Dates: start: 20120101, end: 20121023

REACTIONS (3)
  - Lactic acidosis [Recovered/Resolved]
  - Pulmonary oedema [Unknown]
  - Wound infection [Unknown]
